FAERS Safety Report 6278321-X (Version None)
Quarter: 2009Q3

REPORT INFORMATION
  Report Type: 
  Country: None (occurrence: None)
  Receive Date: 20090722
  Receipt Date: 20090714
  Transmission Date: 20100115
  Serious: Yes (Other)
  Sender: FDA-Public Use
  Company Number: GB-ASTRAZENECA-2009SE04774

PATIENT
  Age: 84 Year
  Sex: Female
  Weight: 64 kg

DRUGS (6)
  1. MARCAINE [Suspect]
     Route: 014
     Dates: start: 20090625, end: 20090625
  2. KENALOG [Suspect]
     Route: 014
     Dates: start: 20090625, end: 20090625
  3. ANTIHISTAMINES [Concomitant]
     Route: 048
  4. COD LIVER OIL [Concomitant]
     Route: 048
  5. NULYTELY [Concomitant]
     Route: 048
  6. ACETAMINOPHEN [Concomitant]

REACTIONS (2)
  - DYSPNOEA [None]
  - RASH [None]
